FAERS Safety Report 5919544-6 (Version None)
Quarter: 2008Q4

REPORT INFORMATION
  Report Type: 
  Country: None (occurrence: None)
  Receive Date: 20081015
  Receipt Date: 20081002
  Transmission Date: 20090506
  Serious: Yes (Disabling, Other)
  Sender: FDA-Public Use
  Company Number: US-ELI_LILLY_AND_COMPANY-US200810000513

PATIENT
  Sex: Female

DRUGS (3)
  1. EVISTA [Suspect]
     Indication: PROPHYLAXIS
     Dosage: 60 MG, DAILY (1/D)
     Route: 065
     Dates: start: 20000101
  2. DILTIAZEM HCL [Concomitant]
     Indication: BLOOD PRESSURE
     Dosage: 240 MG, DAILY (1/D)
     Route: 065
  3. CALCIUM WITH VITAMIN D [Concomitant]
     Indication: SUPPLEMENTATION THERAPY
     Dosage: UNK, DAILY (1/D)
     Route: 065

REACTIONS (4)
  - BLINDNESS [None]
  - DRUG INEFFECTIVE [None]
  - GLAUCOMA [None]
  - OCULAR VASCULAR DISORDER [None]
